FAERS Safety Report 8827964 (Version 1)
Quarter: 2012Q4

REPORT INFORMATION
  Report Type: 
  Country: US (occurrence: US)
  Receive Date: 20121005
  Receipt Date: 20121005
  Transmission Date: 20130627
  Serious: Yes (Hospitalization)
  Sender: FDA-Public Use
  Company Number: US-BAYER-2012-102939

PATIENT
  Age: 35 Year
  Sex: Female
  Weight: 79.37 kg

DRUGS (4)
  1. YASMIN [Suspect]
  2. TORADOL [Concomitant]
     Indication: PAIN
  3. ZITHROMAX [Concomitant]
     Dosage: 250 mg, daily for 5 for days
  4. VICODIN [Concomitant]
     Indication: PAIN

REACTIONS (1)
  - Pulmonary embolism [None]
